FAERS Safety Report 6551658-2 (Version None)
Quarter: 2010Q1

REPORT INFORMATION
  Report Type: 
  Country: None (occurrence: None)
  Receive Date: 20100126
  Receipt Date: 20100115
  Transmission Date: 20100710
  Serious: Yes (Other)
  Sender: FDA-Public Use
  Company Number: CA-JNJFOC-20091103503

PATIENT
  Sex: Male
  Weight: 94.5 kg

DRUGS (1)
  1. REMICADE [Suspect]
     Indication: PSORIASIS
     Route: 042
     Dates: start: 20090601, end: 20090915

REACTIONS (2)
  - GRANULOMA SKIN [None]
  - SARCOIDOSIS [None]
